FAERS Safety Report 9663744 (Version 2)
Quarter: 2013Q4

REPORT INFORMATION
  Report Type: Spontaneous
  Country: GB (occurrence: GB)
  Receive Date: 20131101
  Receipt Date: 20131121
  Transmission Date: 20140711
  Serious: Yes (Death, Hospitalization, Disabling, Other)
  Sender: FDA-Public Use
  Company Number: PHFR2013GB006088

PATIENT
  Age: 64 Year
  Sex: Male
  Weight: 55 kg

DRUGS (8)
  1. CLOZARIL [Suspect]
     Indication: SCHIZOPHRENIA
     Dosage: UNK UKN, UNK
     Route: 048
     Dates: start: 20110405
  2. CLOZARIL [Suspect]
     Dosage: 400 MG, UNK
     Route: 048
  3. AMLODIPINE [Concomitant]
     Indication: HYPERTENSION
     Dosage: 10 MG, UNK
     Route: 048
  4. ATORVASTATIN [Concomitant]
     Indication: BLOOD CHOLESTEROL
     Dosage: 10 MG, QD
     Route: 048
  5. METFORMIN [Concomitant]
     Indication: DIABETES MELLITUS
     Dosage: 850 MG, TID
     Route: 048
  6. PIOGLITAZONE [Concomitant]
     Indication: DIABETES MELLITUS
     Dosage: 30 MG, QD
     Route: 048
  7. LANSOPRAZOLE [Concomitant]
     Indication: GASTROOESOPHAGEAL REFLUX DISEASE
     Dosage: 30 MG, QD
     Route: 048
  8. PARACETAMOL [Concomitant]
     Indication: OSTEOARTHRITIS
     Dosage: 19 MG, QD
     Route: 048

REACTIONS (10)
  - Death [Fatal]
  - Fall [Unknown]
  - Balance disorder [Recovering/Resolving]
  - Dizziness [Recovering/Resolving]
  - Haemoglobin decreased [Unknown]
  - Red blood cell count decreased [Unknown]
  - Haematocrit decreased [Unknown]
  - White blood cell count increased [Recovered/Resolved]
  - Neutrophil count increased [Unknown]
  - Platelet count increased [Unknown]
